FAERS Safety Report 15582559 (Version 2)
Quarter: 2018Q4

REPORT INFORMATION
  Report Type: Spontaneous
  Country: FR (occurrence: FR)
  Receive Date: 20181103
  Receipt Date: 20181226
  Transmission Date: 20190205
  Serious: Yes (Hospitalization)
  Sender: FDA-Public Use
  Company Number: FR-ACCORD-090850

PATIENT
  Age: 66 Year
  Sex: Male

DRUGS (8)
  1. BENDAMUSTINE ACCORD [Suspect]
     Active Substance: BENDAMUSTINE
     Indication: MANTLE CELL LYMPHOMA
     Dosage: 120MG TO D1 D2
     Route: 042
     Dates: start: 20171213, end: 20171214
  2. CYTARABINE SANDOZ [Suspect]
     Active Substance: CYTARABINE
     Indication: MANTLE CELL LYMPHOMA
     Dosage: 100 MG/ML, SOLUTION INJECTABLE, 855MG TO D1 D2 D3
     Route: 042
     Dates: start: 20171213, end: 20171215
  3. DAFALGAN [Concomitant]
     Active Substance: ACETAMINOPHEN
  4. MABTHERA [Suspect]
     Active Substance: RITUXIMAB
     Indication: MANTLE CELL LYMPHOMA
     Dosage: J1
     Route: 042
     Dates: start: 20171213, end: 20171213
  5. BACTRIM [Concomitant]
     Active Substance: SULFAMETHOXAZOLE\TRIMETHOPRIM
     Dosage: TABLET
  6. ZELITREX [Concomitant]
     Active Substance: VALACYCLOVIR HYDROCHLORIDE
  7. TRAMADOL. [Concomitant]
     Active Substance: TRAMADOL
  8. PRIMPERAN [Concomitant]
     Active Substance: METOCLOPRAMIDE HYDROCHLORIDE

REACTIONS (4)
  - Purpura [Recovering/Resolving]
  - Acute kidney injury [Not Recovered/Not Resolved]
  - Pyrexia [Recovering/Resolving]
  - Dermatitis exfoliative generalised [Recovering/Resolving]

NARRATIVE: CASE EVENT DATE: 20171218
